FAERS Safety Report 5775775-X (Version None)
Quarter: 2008Q2

REPORT INFORMATION
  Report Type: 
  Country: None (occurrence: None)
  Receive Date: 20080617
  Receipt Date: 20080528
  Transmission Date: 20081010
  Serious: No
  Sender: FDA-Public Use
  Company Number: US-BOEHRINGER INGELHEIM GMBH, GERMANY-2008-BP-06902BP

PATIENT
  Sex: Male

DRUGS (8)
  1. CATAPRES-TTS-1 [Suspect]
     Indication: HYPERTENSION
     Route: 061
     Dates: start: 20071201
  2. CLONIDINE [Suspect]
     Indication: HYPERTENSION
  3. BENICAR HCT [Concomitant]
  4. NADOLOL [Concomitant]
  5. TEKTURNA [Concomitant]
  6. SYNTHROID [Concomitant]
  7. ZETIA [Concomitant]
  8. ASPIRIN [Concomitant]

REACTIONS (1)
  - BLOOD PRESSURE INADEQUATELY CONTROLLED [None]
